FAERS Safety Report 7067543-6 (Version None)
Quarter: 2010Q4

REPORT INFORMATION
  Report Type: 
  Country: None (occurrence: None)
  Receive Date: 20101028
  Receipt Date: 20101014
  Transmission Date: 20110411
  Serious: Yes (Hospitalization)
  Sender: FDA-Public Use
  Company Number: CH-RANBAXY-2010RR-37968

PATIENT
  Age: 60 Year
  Sex: Male

DRUGS (1)
  1. VERAPAMIL [Suspect]
     Indication: PALPITATIONS
     Dosage: 80 MG, UNK

REACTIONS (2)
  - CARDIOGENIC SHOCK [None]
  - OVERDOSE [None]
